FAERS Safety Report 6102084-1 (Version None)
Quarter: 2009Q1

REPORT INFORMATION
  Report Type: 
  Country: None (occurrence: None)
  Receive Date: 20090303
  Receipt Date: 20090303
  Transmission Date: 20090719
  Serious: Yes (Other)
  Sender: FDA-Public Use
  Company Number: None

PATIENT
  Sex: Female
  Weight: 175.4 kg

DRUGS (1)
  1. VANCOMYCIN [Suspect]
     Dosage: 1000MG IV
     Route: 042
     Dates: start: 20081010, end: 20081010

REACTIONS (4)
  - DYSPNOEA [None]
  - HYPERHIDROSIS [None]
  - INFUSION RELATED REACTION [None]
  - PHARYNGEAL OEDEMA [None]
